FAERS Safety Report 9025554 (Version 1)
Quarter: 2013Q1

REPORT INFORMATION
  Report Type: Report from Study
  Country: AU (occurrence: AU)
  Receive Date: 20130122
  Receipt Date: 20130122
  Transmission Date: 20140127
  Serious: Yes (Other)
  Sender: FDA-Public Use
  Company Number: AU-ROCHE-1181646

PATIENT
  Sex: 0

DRUGS (4)
  1. AVASTIN [Suspect]
     Indication: COLORECTAL CANCER METASTATIC
     Route: 065
  2. 5-FLUOROURACIL [Concomitant]
  3. LEUCOVORIN [Concomitant]
  4. OXALIPLATIN [Concomitant]

REACTIONS (1)
  - Disease progression [Unknown]
